FAERS Safety Report 12305829 (Version 1)
Quarter: 2016Q2

REPORT INFORMATION
  Report Type: Spontaneous
  Country: US (occurrence: US)
  Receive Date: 20160426
  Receipt Date: 20160426
  Transmission Date: 20160815
  Serious: Yes (Other)
  Sender: FDA-Public Use
  Company Number: US-PFIZER INC-2016222148

PATIENT
  Age: 33 Year
  Sex: Female

DRUGS (1)
  1. GABAPENTIN. [Suspect]
     Active Substance: GABAPENTIN
     Dosage: UNK

REACTIONS (8)
  - Loss of consciousness [Recovered/Resolved]
  - Amnesia [Recovered/Resolved]
  - Memory impairment [Unknown]
  - Hallucination, visual [Unknown]
  - Thinking abnormal [Unknown]
  - Self-injurious ideation [Unknown]
  - Chest pain [Recovered/Resolved]
  - Thought blocking [Unknown]

NARRATIVE: CASE EVENT DATE: 20160205
